FAERS Safety Report 19908566 (Version 4)
Quarter: 2022Q1

REPORT INFORMATION
  Report Type: Report from Study
  Country: US (occurrence: US)
  Receive Date: 20211001
  Receipt Date: 20220125
  Transmission Date: 20220424
  Serious: Yes (Death, Life-Threatening, Other)
  Sender: FDA-Public Use
  Company Number: US-JAZZ-2021-US-017650

PATIENT

DRUGS (1)
  1. SOLRIAMFETOL [Suspect]
     Active Substance: SOLRIAMFETOL
     Indication: Foetal exposure timing unspecified
     Route: 064

REACTIONS (1)
  - Hydrops foetalis [Fatal]

NARRATIVE: CASE EVENT DATE: 20210825
